FAERS Safety Report 4734883-2 (Version None)
Quarter: 2005Q3

REPORT INFORMATION
  Report Type: 
  Country: None (occurrence: None)
  Receive Date: 20050721
  Receipt Date: 20050421
  Transmission Date: 20060218
  Serious: No
  Sender: FDA-Public Use
  Company Number: 2005SP000348

PATIENT
  Age: 29 Year

DRUGS (1)
  1. LUNESTA [Suspect]
     Dosage: 3 MG

REACTIONS (1)
  - DYSGEUSIA [None]
